FAERS Safety Report 6078227-5 (Version None)
Quarter: 2009Q1

REPORT INFORMATION
  Report Type: 
  Country: None (occurrence: None)
  Receive Date: 20090213
  Receipt Date: 20090203
  Transmission Date: 20090719
  Serious: Yes (Death)
  Sender: FDA-Public Use
  Company Number: US-ELI_LILLY_AND_COMPANY-US200902001148

PATIENT
  Age: 78 Year
  Sex: Female

DRUGS (11)
  1. ZYPREXA [Suspect]
     Dosage: 2.5 MG, DAILY (1/D)
  2. ZYPREXA [Suspect]
     Dosage: 10 MG, UNK
  3. MIRTAZAPINE [Concomitant]
  4. ZOLOFT [Concomitant]
  5. AMITRIPTYLINE HCL [Concomitant]
  6. AMBIEN [Concomitant]
  7. LORAZEPAM [Concomitant]
  8. LEXAPRO [Concomitant]
  9. TRAZODONE HCL [Concomitant]
  10. PHENYTOIN [Concomitant]
  11. ACYCLOVIR [Concomitant]

REACTIONS (3)
  - COMPLETED SUICIDE [None]
  - DRUG TOXICITY [None]
  - INTENTIONAL OVERDOSE [None]
